FAERS Safety Report 9925971 (Version 3)
Quarter: 2014Q1

REPORT INFORMATION
  Report Type: Spontaneous
  Country: GB (occurrence: GB)
  Receive Date: 20140226
  Receipt Date: 20140318
  Transmission Date: 20141002
  Serious: Yes (Other)
  Sender: FDA-Public Use
  Company Number: GB-GILEAD-2014-0095199

PATIENT
  Age: 31 Year
  Sex: Female

DRUGS (4)
  1. TRUVADA [Suspect]
     Indication: HIV INFECTION
     Dosage: 1 DF, QD
     Route: 048
     Dates: start: 20130509
  2. REYATAZ [Suspect]
     Indication: HIV INFECTION
     Dosage: 300 MG/DAY
     Route: 048
     Dates: start: 20130509
  3. NORVIR [Suspect]
     Indication: HIV INFECTION
     Dosage: 100 MG, QD
     Route: 048
     Dates: start: 20130509
  4. ISENTRESS [Suspect]
     Indication: HIV INFECTION
     Dosage: 800 MG, QD
     Route: 048
     Dates: start: 20130509, end: 20130905

REACTIONS (3)
  - Acute HIV infection [Unknown]
  - Stillbirth [Recovered/Resolved]
  - Exposure during pregnancy [Unknown]
